FAERS Safety Report 14726663 (Version 1)
Quarter: 2018Q2

REPORT INFORMATION
  Report Type: Other
  Country: DE (occurrence: DE)
  Receive Date: 20180406
  Receipt Date: 20180406
  Transmission Date: 20180711
  Serious: Yes (Other)
  Sender: FDA-Public Use
  Company Number: DE-MERCK KGAA-2045255

PATIENT
  Age: 40 Year
  Sex: Female

DRUGS (9)
  1. PRAVASTATIN SODIUM. [Suspect]
     Active Substance: PRAVASTATIN SODIUM
  2. NOVOTHYROX [Suspect]
     Active Substance: LEVOTHYROXINE SODIUM
     Indication: PRODUCT USED FOR UNKNOWN INDICATION
  3. SELENIUM [Suspect]
     Active Substance: SELENIUM
  4. ASA [Suspect]
     Active Substance: ASPIRIN
  5. MYO-INOSITOL [Suspect]
     Active Substance: INOSITOL
  6. INSULIN [Suspect]
     Active Substance: INSULIN NOS
  7. PROGESTERONE. [Suspect]
     Active Substance: PROGESTERONE
  8. ENOXAPARIN [Suspect]
     Active Substance: ENOXAPARIN
     Route: 058
  9. FOLIC ACID. [Suspect]
     Active Substance: FOLIC ACID

REACTIONS (5)
  - Product use in unapproved indication [Unknown]
  - Gestational diabetes [Unknown]
  - Maternal exposure during pregnancy [Recovered/Resolved]
  - Normal newborn [Recovered/Resolved]
  - Product use issue [Unknown]
